FAERS Safety Report 11867458 (Version 3)
Quarter: 2016Q1

REPORT INFORMATION
  Report Type: Report from Study
  Country: US (occurrence: US)
  Receive Date: 20151224
  Receipt Date: 20160219
  Transmission Date: 20160526
  Serious: Yes (Other)
  Sender: FDA-Public Use
  Company Number: US-GILEAD-2015-0189935

PATIENT
  Age: 54 Year
  Sex: Female

DRUGS (1)
  1. IDELALISIB [Suspect]
     Active Substance: IDELALISIB
     Indication: LYMPHOMA
     Dosage: 150 MG, BID
     Route: 048
     Dates: start: 201411, end: 201601

REACTIONS (5)
  - Night sweats [Unknown]
  - Neck pain [Unknown]
  - Pleural effusion [Unknown]
  - Neoplasm [Unknown]
  - Disease progression [Unknown]
